FAERS Safety Report 14092139 (Version 1)
Quarter: 2017Q4

REPORT INFORMATION
  Report Type: Spontaneous
  Country: GB (occurrence: GB)
  Receive Date: 20171016
  Receipt Date: 20171016
  Transmission Date: 20180321
  Serious: Yes (Other)
  Sender: FDA-Public Use
  Company Number: GB-009507513-1710GBR005459

PATIENT
  Age: 70 Year
  Sex: Female
  Weight: 64 kg

DRUGS (27)
  1. ZOMORPH [Concomitant]
     Active Substance: MORPHINE SULFATE
     Dosage: 1 DF, Q12H
     Dates: start: 20160824
  2. DOMPERIDONE [Concomitant]
     Active Substance: DOMPERIDONE
     Dosage: 1 DF, TID
     Dates: start: 20170926
  3. MORPHINE SULFATE. [Concomitant]
     Active Substance: MORPHINE SULFATE
     Dosage: 5-10ML TO BE TAKEN 4 TIMES DAILY
     Dates: start: 20160127
  4. NEOMYCIN SULFATE. [Concomitant]
     Active Substance: NEOMYCIN SULFATE
     Dosage: 1 DF, QID, INSIDE BOTH NOSTRILS.
     Dates: start: 20170905, end: 20170915
  5. CLOTRIMAZOLE. [Concomitant]
     Active Substance: CLOTRIMAZOLE
     Dosage: 1 DF, BID
     Dates: start: 20170712, end: 20170920
  6. HUMALOG [Concomitant]
     Active Substance: INSULIN LISPRO
     Dosage: 20 UNITS IN THE MORNING, 12 UNITS AT TEATIME.
     Dates: start: 20151015
  7. OCTENISAN [Concomitant]
     Dosage: WASH ENTIRE BODY AND HAIR/SCALP AS WASH/SHAMPOO FOR 5 DAYS.
     Dates: start: 20170905, end: 20170910
  8. SERTRALINE HYDROCHLORIDE. [Concomitant]
     Active Substance: SERTRALINE HYDROCHLORIDE
     Dosage: 1 DF, QD, FOR THE NEXT 7 DAYS, THEN SWITCH.
     Dates: start: 20170201, end: 20170927
  9. BETAMETHASONE VALERATE. [Concomitant]
     Active Substance: BETAMETHASONE VALERATE
     Dosage: 1 DF, BID
     Dates: start: 20161221
  10. HYDROCORTISONE. [Concomitant]
     Active Substance: HYDROCORTISONE
     Dosage: 1 DF, BID
     Dates: start: 20170921
  11. ACETAMINOPHEN. [Concomitant]
     Active Substance: ACETAMINOPHEN
     Dosage: 2 DF, QID
     Dates: start: 20161021
  12. ADCAL (CALCIUM CARBONATE) [Concomitant]
     Active Substance: CALCIUM CARBONATE
     Dosage: 1 DF, BID
     Dates: start: 20170130
  13. ALENDRONIC ACID [Concomitant]
     Active Substance: ALENDRONIC ACID
     Dosage: 1 DF, QW
     Dates: start: 20170130
  14. AMITRIPTYLINE HYDROCHLORIDE. [Concomitant]
     Active Substance: AMITRIPTYLINE HYDROCHLORIDE
     Dosage: 1 DF, QD, NIGHT.
     Dates: start: 20161021, end: 20170906
  15. DEXTROSE. [Concomitant]
     Active Substance: DEXTROSE
     Indication: HYPOGLYCAEMIA
     Dosage: UNK, PRN
     Dates: start: 20161021
  16. METFORMIN [Concomitant]
     Active Substance: METFORMIN HYDROCHLORIDE
     Dosage: 1 DF, BID
     Dates: start: 20161021
  17. OMEPRAZOLE. [Concomitant]
     Active Substance: OMEPRAZOLE
     Dosage: 1 DF, BID
  18. SODIUM PHOSPHATE, MONOBASIC [Concomitant]
     Active Substance: SODIUM PHOSPHATE, MONOBASIC
     Dosage: 1 DF, UNK IF BOWELS NOT OPENED IN 2-3 DAY
     Dates: start: 20170920, end: 20170922
  19. CONOTRANE (BENZALKONIUM CHLORIDE (+) DIMETHICONE) [Concomitant]
     Dosage: 1 DF, PRN
     Dates: start: 20170616
  20. FEXOFENADINE HYDROCHLORIDE. [Concomitant]
     Active Substance: FEXOFENADINE HYDROCHLORIDE
     Dosage: 1 DF, QD
     Dates: start: 20170510, end: 20170906
  21. LORATADINE. [Concomitant]
     Active Substance: LORATADINE
     Dosage: 1 DF, QD
     Dates: start: 20170906
  22. SENNA [Concomitant]
     Active Substance: SENNA LEAF\SENNOSIDES\SENNOSIDES A AND B
     Dosage: 2 DF, QD, AT NIGHT.
     Dates: start: 20170906
  23. MIRTAZAPINE. [Suspect]
     Active Substance: MIRTAZAPINE
     Dosage: UNK
     Dates: start: 20170929
  24. ATORVASTATIN [Concomitant]
     Active Substance: ATORVASTATIN
     Dosage: 1 DF, QD, NIGHT.
     Dates: start: 20161021
  25. CALOGEN (CANOLA OIL (+) SUNFLOWER OIL) [Concomitant]
     Dosage: 40 ML, TID
     Dates: start: 20170904
  26. LAXIDO [Concomitant]
     Active Substance: POLYETHYLENE GLYCOL 3350\POTASSIUM CHLORIDE\SODIUM BICARBONATE\SODIUM CHLORIDE
     Dosage: 2 DF, QD
     Dates: start: 20161021
  27. MENTHOL. [Concomitant]
     Active Substance: MENTHOL
     Indication: DRY SKIN
     Dosage: 1 DF, PRN
     Dates: start: 20170913

REACTIONS (2)
  - Personality change [Unknown]
  - Personality disorder [Recovering/Resolving]

NARRATIVE: CASE EVENT DATE: 20170929
